FAERS Safety Report 26087600 (Version 1)
Quarter: 2025Q4

REPORT INFORMATION
  Report Type: Spontaneous
  Country: EU (occurrence: EU)
  Receive Date: 20251125
  Receipt Date: 20251125
  Transmission Date: 20260118
  Serious: Yes (Other)
  Sender: OTSUKA
  Company Number: EU-TEVA-VS-3389679

PATIENT
  Age: 45 Year
  Sex: Male

DRUGS (3)
  1. ARIPIPRAZOLE [Suspect]
     Active Substance: ARIPIPRAZOLE
     Indication: Product used for unknown indication
     Dosage: UNK
     Route: 065
  2. RISPERIDONE [Suspect]
     Active Substance: RISPERIDONE
     Indication: Product used for unknown indication
     Dosage: UNK
     Route: 065
  3. OLANZAPINE [Suspect]
     Active Substance: OLANZAPINE
     Indication: Product used for unknown indication
     Dosage: UNK
     Route: 065

REACTIONS (10)
  - Hyperprolactinaemia [Recovered/Resolved]
  - Paranoia [Unknown]
  - Sexual dysfunction [Unknown]
  - Nervousness [Unknown]
  - Blood cholesterol increased [Recovered/Resolved]
  - Sedation [Recovered/Resolved]
  - Restlessness [Unknown]
  - Glucose tolerance impaired [Unknown]
  - Insomnia [Unknown]
  - Weight increased [Recovering/Resolving]
